FAERS Safety Report 17352286 (Version 2)
Quarter: 2020Q1

REPORT INFORMATION
  Report Type: Spontaneous
  Country: PS (occurrence: PS)
  Receive Date: 20200130
  Receipt Date: 20200310
  Transmission Date: 20200409
  Serious: No
  Sender: FDA-Public Use
  Company Number: PS-AMGEN-PSESP2020015797

PATIENT
  Age: 41 Month
  Sex: Female
  Weight: 10 kg

DRUGS (2)
  1. ENBREL [Suspect]
     Active Substance: ETANERCEPT
     Dosage: 25 MILLIGRAM, QWK
     Route: 065
  2. ENBREL [Suspect]
     Active Substance: ETANERCEPT
     Indication: RHEUMATOID ARTHRITIS
     Dosage: 8 MILLIGRAM, QWK  (1/3 OF 25MG SYRINGE)
     Route: 065

REACTIONS (10)
  - Lymphocyte count increased [Unknown]
  - Platelet count increased [Unknown]
  - Neutrophil count decreased [Unknown]
  - Monocyte count increased [Unknown]
  - White blood cell count increased [Unknown]
  - Platelet distribution width decreased [Unknown]
  - Procalcitonin increased [Unknown]
  - Off label use [Unknown]
  - Incorrect dose administered [Unknown]
  - Red blood cell sedimentation rate increased [Unknown]

NARRATIVE: CASE EVENT DATE: 20200111
